FAERS Safety Report 14286449 (Version 1)
Quarter: 2017Q4

REPORT INFORMATION
  Report Type: Spontaneous
  Country: US (occurrence: US)
  Receive Date: 20171214
  Receipt Date: 20171214
  Transmission Date: 20180321
  Serious: Yes (Other)
  Sender: FDA-Public Use
  Company Number: PHEH2017US039658

PATIENT
  Sex: Female

DRUGS (3)
  1. ZOMETA [Suspect]
     Active Substance: ZOLEDRONIC ACID
     Indication: BREAST CANCER
     Dosage: UNK
     Route: 042
     Dates: start: 201608, end: 201706
  2. VITAMIN E [Concomitant]
     Active Substance: .ALPHA.-TOCOPHEROL
     Indication: PRODUCT USED FOR UNKNOWN INDICATION
     Route: 065
  3. TURMERIC [Concomitant]
     Active Substance: HERBALS\TURMERIC
     Indication: PAIN
     Route: 065

REACTIONS (1)
  - Neoplasm [Unknown]
